FAERS Safety Report 21916774 (Version 2)
Quarter: 2023Q1

REPORT INFORMATION
  Report Type: Report from Study
  Country: KR (occurrence: KR)
  Receive Date: 20230126
  Receipt Date: 20230210
  Transmission Date: 20230417
  Serious: Yes (Hospitalization, Other)
  Sender: FDA-Public Use
  Company Number: KR-MYLANLABS-2023M1005535

PATIENT
  Sex: Male
  Weight: 62.7 kg

DRUGS (188)
  1. XANAX [Suspect]
     Active Substance: ALPRAZOLAM
     Indication: Product used for unknown indication
     Dosage: 2 DOSAGE FORM
     Route: 048
     Dates: start: 20190821, end: 20190821
  2. ACETAMINOPHEN\TRAMADOL HYDROCHLORIDE [Interacting]
     Active Substance: ACETAMINOPHEN\TRAMADOL HYDROCHLORIDE
     Indication: Product used for unknown indication
     Dosage: 1 DOSAGE FORM
     Route: 048
     Dates: start: 20181019, end: 20181027
  3. ACETAMINOPHEN\TRAMADOL HYDROCHLORIDE [Interacting]
     Active Substance: ACETAMINOPHEN\TRAMADOL HYDROCHLORIDE
     Dosage: 1 DOSAGE FORM, QD
     Route: 048
     Dates: start: 20191014, end: 20191014
  4. ACETAMINOPHEN\TRAMADOL HYDROCHLORIDE [Interacting]
     Active Substance: ACETAMINOPHEN\TRAMADOL HYDROCHLORIDE
     Dosage: 1 DOSAGE FORM
     Route: 048
     Dates: start: 20191015, end: 20191015
  5. ACETAMINOPHEN\TRAMADOL HYDROCHLORIDE [Interacting]
     Active Substance: ACETAMINOPHEN\TRAMADOL HYDROCHLORIDE
     Dosage: 1 DOSAGE FORM
     Route: 048
     Dates: start: 20191016, end: 20191027
  6. TRAMADOL HYDROCHLORIDE [Interacting]
     Active Substance: TRAMADOL HYDROCHLORIDE
     Indication: Product used for unknown indication
     Dosage: 100 MILLIGRAM, QD
     Route: 048
     Dates: start: 20181019, end: 20181019
  7. TRAMADOL HYDROCHLORIDE [Interacting]
     Active Substance: TRAMADOL HYDROCHLORIDE
     Dosage: 50 MILLIGRAM, QD
     Route: 048
     Dates: start: 20181020, end: 20181020
  8. TRAMADOL HYDROCHLORIDE [Interacting]
     Active Substance: TRAMADOL HYDROCHLORIDE
     Dosage: 50 MILLIGRAM, QD
     Route: 048
     Dates: start: 20181113, end: 20181113
  9. TRAMADOL HYDROCHLORIDE [Interacting]
     Active Substance: TRAMADOL HYDROCHLORIDE
     Dosage: 50 MILLIGRAM
     Route: 048
     Dates: start: 20181114, end: 20181114
  10. TRAMADOL HYDROCHLORIDE [Interacting]
     Active Substance: TRAMADOL HYDROCHLORIDE
     Dosage: 50 MILLIGRAM
     Route: 048
     Dates: start: 20190717, end: 20190718
  11. TRAMADOL HYDROCHLORIDE [Interacting]
     Active Substance: TRAMADOL HYDROCHLORIDE
     Dosage: 50 MILLIGRAM, QD
     Route: 048
     Dates: start: 20190719, end: 20190721
  12. TRAMADOL HYDROCHLORIDE [Interacting]
     Active Substance: TRAMADOL HYDROCHLORIDE
     Dosage: 50 MILLIGRAM, QD
     Route: 048
     Dates: start: 20190823, end: 20190823
  13. TRAMADOL HYDROCHLORIDE [Interacting]
     Active Substance: TRAMADOL HYDROCHLORIDE
     Dosage: 50 MILLIGRAM
     Route: 048
     Dates: start: 20190906, end: 20190914
  14. TRAMADOL HYDROCHLORIDE [Interacting]
     Active Substance: TRAMADOL HYDROCHLORIDE
     Dosage: 50 MILLIGRAM, QD
     Route: 048
     Dates: start: 20191003, end: 20191005
  15. TRAMADOL HYDROCHLORIDE [Interacting]
     Active Substance: TRAMADOL HYDROCHLORIDE
     Dosage: 50 MILLIGRAM
     Route: 048
     Dates: start: 20191010, end: 20191011
  16. TRAMADOL HYDROCHLORIDE [Interacting]
     Active Substance: TRAMADOL HYDROCHLORIDE
     Dosage: 50 MILLIGRAM, QD
     Route: 048
     Dates: start: 20191031, end: 20191031
  17. TRAMADOL HYDROCHLORIDE [Interacting]
     Active Substance: TRAMADOL HYDROCHLORIDE
     Dosage: 50 MILLIGRAM
     Route: 048
     Dates: start: 20191101, end: 20191105
  18. TRAMADOL HYDROCHLORIDE [Interacting]
     Active Substance: TRAMADOL HYDROCHLORIDE
     Dosage: 50 MILLIGRAM, QD
     Route: 048
     Dates: start: 20191107, end: 20191107
  19. TRAMADOL HYDROCHLORIDE [Interacting]
     Active Substance: TRAMADOL HYDROCHLORIDE
     Dosage: 50 MILLIGRAM, QD
     Route: 048
     Dates: start: 20191118, end: 20191118
  20. PROPACETAMOL HYDROCHLORIDE [Interacting]
     Active Substance: PROPACETAMOL HYDROCHLORIDE
     Indication: Product used for unknown indication
     Dosage: 1 GRAM, QD
     Route: 042
     Dates: start: 20181114, end: 20181114
  21. PROPACETAMOL HYDROCHLORIDE [Interacting]
     Active Substance: PROPACETAMOL HYDROCHLORIDE
     Dosage: 1 GRAM, QD
     Route: 042
     Dates: start: 20190905, end: 20190905
  22. PROPACETAMOL HYDROCHLORIDE [Interacting]
     Active Substance: PROPACETAMOL HYDROCHLORIDE
     Dosage: 1 GRAM, QD
     Route: 042
     Dates: start: 20191027, end: 20191029
  23. METOCLOPRAMIDE HYDROCHLORIDE [Interacting]
     Active Substance: METOCLOPRAMIDE HYDROCHLORIDE
     Indication: Product used for unknown indication
     Dosage: 5 MILLIGRAM
     Route: 042
     Dates: start: 20181114, end: 20181115
  24. MAGNESIUM OXIDE [Interacting]
     Active Substance: MAGNESIUM OXIDE
     Indication: Product used for unknown indication
     Dosage: 500 MILLIGRAM
     Route: 048
     Dates: start: 20181114, end: 20181114
  25. MAGNESIUM OXIDE [Interacting]
     Active Substance: MAGNESIUM OXIDE
     Dosage: 500 MILLIGRAM
     Route: 048
     Dates: start: 20190225, end: 20190324
  26. MAGNESIUM OXIDE [Interacting]
     Active Substance: MAGNESIUM OXIDE
     Dosage: 1000 MILLIGRAM
     Route: 048
     Dates: start: 20190325, end: 20190804
  27. MAGNESIUM OXIDE [Interacting]
     Active Substance: MAGNESIUM OXIDE
     Dosage: 1 DOSAGE FORM
     Route: 048
     Dates: start: 20190807, end: 20190807
  28. MAGNESIUM OXIDE [Interacting]
     Active Substance: MAGNESIUM OXIDE
     Dosage: 2 DOSAGE FORM
     Route: 048
     Dates: start: 20190808, end: 20191116
  29. ACETAMINOPHEN [Interacting]
     Active Substance: ACETAMINOPHEN
     Indication: Product used for unknown indication
     Dosage: 1 DOSAGE FORM
     Route: 048
     Dates: start: 20181217, end: 20190105
  30. ACETAMINOPHEN [Interacting]
     Active Substance: ACETAMINOPHEN
     Dosage: 1 DOSAGE FORM, QD
     Route: 048
     Dates: start: 20191004, end: 20191004
  31. ACETAMINOPHEN [Interacting]
     Active Substance: ACETAMINOPHEN
     Dosage: 1 DOSAGE FORM, QD
     Route: 048
     Dates: start: 20191007, end: 20191010
  32. ACETAMINOPHEN [Interacting]
     Active Substance: ACETAMINOPHEN
     Indication: Product used for unknown indication
     Dosage: 1 GRAM
     Route: 042
     Dates: start: 20190819, end: 20190819
  33. BISACODYL [Interacting]
     Active Substance: BISACODYL
     Indication: Product used for unknown indication
     Dosage: 0.5 DOSAGE FORM, QD
     Route: 048
     Dates: start: 20190708, end: 20190818
  34. BISACODYL [Interacting]
     Active Substance: BISACODYL
     Indication: Product used for unknown indication
     Dosage: 10 MILLIGRAM
     Route: 048
     Dates: start: 20190807, end: 20190807
  35. BISACODYL [Interacting]
     Active Substance: BISACODYL
     Dosage: 10 MILLIGRAM
     Route: 048
     Dates: start: 20190809, end: 20190809
  36. LACTULOSE [Interacting]
     Active Substance: LACTULOSE
     Indication: Product used for unknown indication
     Dosage: 15 MILLILITER, QD
     Route: 048
     Dates: start: 20190807, end: 20190807
  37. LACTULOSE [Interacting]
     Active Substance: LACTULOSE
     Dosage: 30 MILLILITER, QD
     Route: 048
     Dates: start: 20190826, end: 20190908
  38. MOSAPRIDE CITRATE DIHYDRATE [Interacting]
     Active Substance: MOSAPRIDE CITRATE DIHYDRATE
     Indication: Product used for unknown indication
     Dosage: 1 DOSAGE FORM, QD
     Route: 048
     Dates: start: 20190808, end: 20190808
  39. MOSAPRIDE CITRATE DIHYDRATE [Interacting]
     Active Substance: MOSAPRIDE CITRATE DIHYDRATE
     Dosage: 2.5 DOSAGE FORM
     Route: 048
     Dates: start: 20190809, end: 20190809
  40. MOSAPRIDE CITRATE DIHYDRATE [Interacting]
     Active Substance: MOSAPRIDE CITRATE DIHYDRATE
     Dosage: 1 DOSAGE FORM
     Route: 048
     Dates: start: 20190810, end: 20190818
  41. MOSAPRIDE CITRATE DIHYDRATE [Interacting]
     Active Substance: MOSAPRIDE CITRATE DIHYDRATE
     Dosage: 1 DOSAGE FORM
     Route: 048
     Dates: start: 20190822, end: 20190912
  42. BISACODYL\DOCUSATE SODIUM [Interacting]
     Active Substance: BISACODYL\DOCUSATE SODIUM
     Indication: Product used for unknown indication
     Dosage: 10 MILLIGRAM
     Route: 048
     Dates: start: 20190813, end: 20190813
  43. BISACODYL\DOCUSATE SODIUM [Interacting]
     Active Substance: BISACODYL\DOCUSATE SODIUM
     Dosage: UNK
     Route: 048
     Dates: start: 20190815, end: 20190818
  44. BISACODYL\DOCUSATE SODIUM [Interacting]
     Active Substance: BISACODYL\DOCUSATE SODIUM
     Dosage: 10 MILLIGRAM
     Route: 048
     Dates: start: 20191022, end: 20191022
  45. BISACODYL\DOCUSATE SODIUM [Interacting]
     Active Substance: BISACODYL\DOCUSATE SODIUM
     Dosage: 10 MILLIGRAM
     Route: 048
     Dates: start: 20191030, end: 20191030
  46. BISACODYL\DOCUSATE SODIUM [Interacting]
     Active Substance: BISACODYL\DOCUSATE SODIUM
     Dosage: 10 MILLIGRAM
     Route: 048
     Dates: start: 20191105, end: 20191105
  47. BISACODYL\DOCUSATE SODIUM [Interacting]
     Active Substance: BISACODYL\DOCUSATE SODIUM
     Dosage: 10 MILLIGRAM
     Route: 048
     Dates: start: 20191115, end: 20191115
  48. BISACODYL\DOCUSATE SODIUM [Interacting]
     Active Substance: BISACODYL\DOCUSATE SODIUM
     Dosage: 10 MILLIGRAM
     Route: 048
     Dates: start: 20191121, end: 20191210
  49. SCOPOLAMINE [Interacting]
     Active Substance: SCOPOLAMINE
     Indication: Product used for unknown indication
     Dosage: 1 DOSAGE FORM, QD
     Route: 048
     Dates: start: 20190813, end: 20190813
  50. SCOPOLAMINE [Interacting]
     Active Substance: SCOPOLAMINE
     Dosage: 2.5 DOSAGE FORM
     Route: 048
     Dates: start: 20190814, end: 20190814
  51. SCOPOLAMINE [Interacting]
     Active Substance: SCOPOLAMINE
     Dosage: 1 DOSAGE FORM
     Route: 048
     Dates: start: 20190815, end: 20190901
  52. KETOROLAC TROMETHAMINE [Interacting]
     Active Substance: KETOROLAC TROMETHAMINE
     Indication: Product used for unknown indication
     Dosage: 30 MILLIGRAM, QD
     Route: 065
     Dates: start: 20190719, end: 20190719
  53. KETOROLAC TROMETHAMINE [Interacting]
     Active Substance: KETOROLAC TROMETHAMINE
     Dosage: 30 MILLIGRAM, QD
     Route: 042
     Dates: start: 20190924, end: 20190924
  54. KETOROLAC TROMETHAMINE [Interacting]
     Active Substance: KETOROLAC TROMETHAMINE
     Dosage: 1 DOSAGE FORM, QD (START DATE:13-OCT-2022)
     Route: 042
     Dates: end: 20201013
  55. PSEUDOEPHEDRINE HYDROCHLORIDE\TRIPROLIDINE HYDROCHLORIDE [Interacting]
     Active Substance: PSEUDOEPHEDRINE HYDROCHLORIDE\TRIPROLIDINE HYDROCHLORIDE
     Indication: Product used for unknown indication
     Dosage: 1 DOSAGE FORM, QD
     Route: 048
     Dates: start: 20190830, end: 20190830
  56. DIETARY SUPPLEMENT\PROBIOTICS [Interacting]
     Active Substance: DIETARY SUPPLEMENT\PROBIOTICS
     Indication: Product used for unknown indication
     Dosage: 2 GRAM
     Route: 048
     Dates: start: 20190908, end: 20190908
  57. DIETARY SUPPLEMENT\PROBIOTICS [Interacting]
     Active Substance: DIETARY SUPPLEMENT\PROBIOTICS
     Dosage: 2 GRAM
     Route: 048
     Dates: start: 20190909, end: 20190911
  58. TRIMEBUTINE MALEATE [Interacting]
     Active Substance: TRIMEBUTINE MALEATE
     Indication: Product used for unknown indication
     Dosage: 1 DOSAGE FORM
     Route: 048
     Dates: start: 20190908, end: 20190908
  59. TRIMEBUTINE MALEATE [Interacting]
     Active Substance: TRIMEBUTINE MALEATE
     Dosage: 1 DOSAGE FORM
     Route: 048
     Dates: start: 20190909, end: 20191007
  60. ACETYLCYSTEINE [Interacting]
     Active Substance: ACETYLCYSTEINE
     Indication: Product used for unknown indication
     Dosage: 800 MILLIGRAM (NASOGASTRIC)
     Route: 065
     Dates: start: 20190820, end: 20191014
  61. MONTMORILLONITE [Interacting]
     Active Substance: MONTMORILLONITE
     Indication: Product used for unknown indication
     Dosage: 20 MILLILITER
     Route: 048
     Dates: start: 20190930, end: 20191009
  62. MONTMORILLONITE [Interacting]
     Active Substance: MONTMORILLONITE
     Dosage: 20 MILLILITER, QD
     Route: 048
     Dates: start: 20191017, end: 20191017
  63. MONTMORILLONITE [Interacting]
     Active Substance: MONTMORILLONITE
     Dosage: 100 MILLILITER, QD
     Route: 048
     Dates: start: 20191018, end: 20191018
  64. MONTMORILLONITE [Interacting]
     Active Substance: MONTMORILLONITE
     Dosage: 20 MILLILITER
     Route: 048
     Dates: start: 20191121, end: 20191217
  65. PREGABALIN [Interacting]
     Active Substance: PREGABALIN
     Indication: Product used for unknown indication
     Dosage: 1 DOSAGE FORM, QD
     Route: 048
     Dates: start: 20191012, end: 20191012
  66. PREGABALIN [Interacting]
     Active Substance: PREGABALIN
     Dosage: 2 DOSAGE FORM, QD
     Route: 048
     Dates: start: 20191013, end: 20191014
  67. PREGABALIN [Interacting]
     Active Substance: PREGABALIN
     Dosage: 1 DOSAGE FORM
     Route: 048
     Dates: start: 20191015, end: 20191015
  68. PREGABALIN [Interacting]
     Active Substance: PREGABALIN
     Dosage: 1 DOSAGE FORM
     Route: 048
     Dates: start: 20191016, end: 20191016
  69. PREGABALIN [Interacting]
     Active Substance: PREGABALIN
     Dosage: 1 DOSAGE FORM
     Route: 048
     Dates: start: 20191017
  70. METRONIDAZOLE [Interacting]
     Active Substance: METRONIDAZOLE
     Indication: Product used for unknown indication
     Dosage: 2 DOSAGE FORM
     Route: 048
     Dates: start: 20191018, end: 20191018
  71. METRONIDAZOLE [Interacting]
     Active Substance: METRONIDAZOLE
     Dosage: 2 DOSAGE FORM
     Route: 048
     Dates: start: 20191019, end: 20191021
  72. SACCHAROMYCES CEREVISIAE [Interacting]
     Active Substance: SACCHAROMYCES CEREVISIAE
     Indication: Constipation
     Dosage: 282.5 MILLIGRAM
     Route: 048
     Dates: start: 20191023, end: 20191023
  73. LOPERAMIDE HYDROCHLORIDE [Interacting]
     Active Substance: LOPERAMIDE HYDROCHLORIDE
     Indication: Product used for unknown indication
     Dosage: 1 DOSAGE FORM, QD
     Route: 048
     Dates: start: 20191023, end: 20191027
  74. FENTANYL [Interacting]
     Active Substance: FENTANYL
     Indication: Product used for unknown indication
     Dosage: 600 MICROGRAM, QD(EXTERNALS ROUTE)
     Route: 062
     Dates: start: 20191022
  75. PIPERACILLIN AND TAZOBACTAM [Suspect]
     Active Substance: PIPERACILLIN SODIUM\TAZOBACTAM SODIUM
     Indication: Product used for unknown indication
     Dosage: 4.5 GRAM
     Route: 042
     Dates: start: 20190819, end: 20190819
  76. PIPERACILLIN AND TAZOBACTAM [Suspect]
     Active Substance: PIPERACILLIN SODIUM\TAZOBACTAM SODIUM
     Dosage: 4.5 MILLIGRAM
     Route: 042
     Dates: start: 20190820, end: 20190829
  77. PIPERACILLIN AND TAZOBACTAM [Suspect]
     Active Substance: PIPERACILLIN SODIUM\TAZOBACTAM SODIUM
     Dosage: 4.5 MILLIGRAM
     Route: 042
     Dates: start: 20190905, end: 20190905
  78. PIPERACILLIN AND TAZOBACTAM [Suspect]
     Active Substance: PIPERACILLIN SODIUM\TAZOBACTAM SODIUM
     Dosage: 4.5 GRAM
     Route: 042
     Dates: start: 20190906, end: 20190912
  79. PIPERACILLIN AND TAZOBACTAM [Suspect]
     Active Substance: PIPERACILLIN SODIUM\TAZOBACTAM SODIUM
     Dosage: 4.5 GRAM
     Route: 042
     Dates: start: 20190924, end: 20190924
  80. PIPERACILLIN AND TAZOBACTAM [Suspect]
     Active Substance: PIPERACILLIN SODIUM\TAZOBACTAM SODIUM
     Dosage: 4.5 GRAM
     Route: 042
     Dates: start: 20190925, end: 20191009
  81. PIPERACILLIN AND TAZOBACTAM [Suspect]
     Active Substance: PIPERACILLIN SODIUM\TAZOBACTAM SODIUM
     Dosage: 4.5 GRAM
     Route: 042
     Dates: start: 20191010, end: 20191013
  82. PIPERACILLIN AND TAZOBACTAM [Suspect]
     Active Substance: PIPERACILLIN SODIUM\TAZOBACTAM SODIUM
     Dosage: 4.5 GRAM
     Route: 042
     Dates: start: 20191028, end: 20191028
  83. PIPERACILLIN AND TAZOBACTAM [Suspect]
     Active Substance: PIPERACILLIN SODIUM\TAZOBACTAM SODIUM
     Dosage: 4.5 GRAM
     Route: 042
     Dates: start: 20191029, end: 20191110
  84. PIPERACILLIN AND TAZOBACTAM [Suspect]
     Active Substance: PIPERACILLIN SODIUM\TAZOBACTAM SODIUM
     Dosage: 4.5 GRAM
     Route: 042
     Dates: start: 20200312, end: 20200331
  85. PIPERACILLIN AND TAZOBACTAM [Suspect]
     Active Substance: PIPERACILLIN SODIUM\TAZOBACTAM SODIUM
     Dosage: 4.5 GRAM
     Route: 042
     Dates: start: 20200416, end: 20200422
  86. PIPERACILLIN AND TAZOBACTAM [Suspect]
     Active Substance: PIPERACILLIN SODIUM\TAZOBACTAM SODIUM
     Dosage: 4.5 GRAM
     Route: 042
     Dates: start: 20200516, end: 20200519
  87. PIPERACILLIN AND TAZOBACTAM [Suspect]
     Active Substance: PIPERACILLIN SODIUM\TAZOBACTAM SODIUM
     Dosage: 1 DOSAGE FORM
     Route: 042
     Dates: start: 20191015, end: 20191019
  88. PIPERACILLIN AND TAZOBACTAM [Suspect]
     Active Substance: PIPERACILLIN SODIUM\TAZOBACTAM SODIUM
     Dosage: 1 DOSAGE FORM (START DATE:17-NOV-2022)
     Route: 042
     Dates: end: 20201118
  89. FAMOTIDINE [Interacting]
     Active Substance: FAMOTIDINE
     Indication: Prophylaxis
     Dosage: 20 MILLIGRAM
     Route: 048
     Dates: start: 20190820, end: 20190823
  90. FUROSEMIDE [Interacting]
     Active Substance: FUROSEMIDE
     Indication: Prophylaxis
     Dosage: 20 MILLIGRAM, QD
     Route: 048
     Dates: start: 20190905, end: 20190905
  91. FUROSEMIDE [Interacting]
     Active Substance: FUROSEMIDE
     Dosage: 10 MILLIGRAM, QD
     Route: 048
     Dates: start: 20190910, end: 20190910
  92. LEVOFLOXACIN [Interacting]
     Active Substance: LEVOFLOXACIN
     Indication: Product used for unknown indication
     Dosage: 25 MILLIGRAM
     Route: 048
     Dates: start: 20190825, end: 20190830
  93. LEVOFLOXACIN [Interacting]
     Active Substance: LEVOFLOXACIN
     Dosage: 250 MILLIGRAM
     Route: 048
     Dates: start: 20200307, end: 20200320
  94. MUPIROCIN [Interacting]
     Active Substance: MUPIROCIN
     Indication: Product used for unknown indication
     Dosage: UNK (EXTERNALS)
     Route: 065
     Dates: start: 20200404, end: 202005
  95. MEROPENEM [Interacting]
     Active Substance: MEROPENEM
     Indication: Product used for unknown indication
     Dosage: 500 MILLIGRAM
     Route: 042
     Dates: start: 20200514, end: 20200514
  96. CIPROFLOXACIN [Interacting]
     Active Substance: CIPROFLOXACIN
     Indication: Product used for unknown indication
     Dosage: 400 MILLIGRAM (START DATE:13-OCT-2022)
     Route: 042
     Dates: end: 20201015
  97. SULFAMETHOXAZOLE\TRIMETHOPRIM [Suspect]
     Active Substance: SULFAMETHOXAZOLE\TRIMETHOPRIM
     Indication: Product used for unknown indication
     Dosage: 2 DOSAGE FORM (START DATE:19-OCT-2022)
     Route: 048
     Dates: end: 20201020
  98. LORAZEPAM [Interacting]
     Active Substance: LORAZEPAM
     Indication: Product used for unknown indication
     Dosage: UNK (START DATE:15-NOV-2022)
     Route: 065
     Dates: end: 20201115
  99. TALNIFLUMATE [Interacting]
     Active Substance: TALNIFLUMATE
     Indication: Product used for unknown indication
     Dosage: 1 DOSAGE FORM
     Route: 048
     Dates: start: 20181217, end: 20190105
  100. MEPERIDINE HYDROCHLORIDE [Concomitant]
     Active Substance: MEPERIDINE HYDROCHLORIDE
     Indication: Pain
     Dosage: 25 MILLIGRAM, QD (INTRAGLUTEAL ROUTE)
     Route: 065
     Dates: start: 20190717, end: 20190717
  101. MIDAZOLAM [Concomitant]
     Active Substance: MIDAZOLAM
     Dosage: 1 MILLIGRAM, QD
     Route: 042
     Dates: start: 20190717, end: 20190717
  102. MIDAZOLAM [Concomitant]
     Active Substance: MIDAZOLAM
     Dosage: 10 MILLIGRAM, QD
     Route: 042
     Dates: start: 20190904, end: 20190904
  103. CEFTRIAXONE SODIUM [Concomitant]
     Active Substance: CEFTRIAXONE SODIUM
     Indication: Infestation
     Dosage: 1 GRAM, QD
     Route: 042
     Dates: start: 20190717, end: 20190718
  104. LACTULOSE [Concomitant]
     Active Substance: LACTULOSE
     Indication: Constipation
     Dosage: 30 MILLILITER, QD
     Route: 048
     Dates: start: 20190822, end: 20190822
  105. LACTULOSE [Concomitant]
     Active Substance: LACTULOSE
     Dosage: 15 MILLILITER, QD
     Route: 048
     Dates: start: 20191121
  106. POTASSIUM CHLORIDE [Concomitant]
     Active Substance: POTASSIUM CHLORIDE
     Indication: Electrolyte imbalance
     Dosage: 2 DOSAGE FORM
     Route: 048
     Dates: start: 20190823, end: 20190828
  107. POTASSIUM CHLORIDE [Concomitant]
     Active Substance: POTASSIUM CHLORIDE
     Dosage: 2 DOSAGE FORM
     Route: 048
     Dates: start: 20190928, end: 20190929
  108. BISACODYL\DOCUSATE SODIUM [Concomitant]
     Active Substance: BISACODYL\DOCUSATE SODIUM
     Indication: Constipation
     Dosage: 10 MILLIGRAM
     Route: 048
     Dates: start: 20190823, end: 20190823
  109. BISACODYL\DOCUSATE SODIUM [Concomitant]
     Active Substance: BISACODYL\DOCUSATE SODIUM
     Dosage: 10 MILLIGRAM
     Route: 048
     Dates: start: 20191011, end: 20191011
  110. TIROPRAMIDE HYDROCHLORIDE [Concomitant]
     Indication: Seizure
     Dosage: 1 DOSAGE FORM
     Route: 048
     Dates: start: 20190825, end: 20190825
  111. TIROPRAMIDE HYDROCHLORIDE [Concomitant]
     Indication: Pain
     Dosage: 1 DOSAGE FORM, QD
     Route: 048
     Dates: start: 20190826, end: 20190826
  112. XANAX [Concomitant]
     Active Substance: ALPRAZOLAM
     Indication: Prophylaxis
     Dosage: 2 DOSAGE FORM, QD
     Route: 048
     Dates: start: 20190902, end: 20190902
  113. XANAX [Concomitant]
     Active Substance: ALPRAZOLAM
     Indication: Sleep disorder
     Dosage: 3 DOSAGE FORM, QD
     Route: 048
     Dates: start: 20190903, end: 20191006
  114. XANAX [Concomitant]
     Active Substance: ALPRAZOLAM
     Dosage: 2 DOSAGE FORM
     Route: 048
     Dates: start: 20191007, end: 20191007
  115. XANAX [Concomitant]
     Active Substance: ALPRAZOLAM
     Dosage: 2.5 DOSAGE FORM
     Route: 048
     Dates: start: 20191008, end: 20191008
  116. XANAX [Concomitant]
     Active Substance: ALPRAZOLAM
     Dosage: 3 DOSAGE FORM, QD
     Route: 048
     Dates: start: 20191009, end: 20191102
  117. QUETIAPINE FUMARATE [Concomitant]
     Active Substance: QUETIAPINE FUMARATE
     Indication: Sleep disorder
     Dosage: 1 DOSAGE FORM, QD
     Route: 048
     Dates: start: 20190901, end: 20190913
  118. QUETIAPINE FUMARATE [Concomitant]
     Active Substance: QUETIAPINE FUMARATE
     Dosage: 1.5 DOSAGE FORM, QD
     Route: 048
     Dates: start: 20190914, end: 20190914
  119. QUETIAPINE FUMARATE [Concomitant]
     Active Substance: QUETIAPINE FUMARATE
     Dosage: 1 DOSAGE FORM, QD
     Route: 048
     Dates: start: 20190915, end: 20190915
  120. QUETIAPINE FUMARATE [Concomitant]
     Active Substance: QUETIAPINE FUMARATE
     Dosage: 2 DOSAGE FORM, QD
     Route: 048
     Dates: start: 20191016, end: 20191016
  121. QUETIAPINE FUMARATE [Concomitant]
     Active Substance: QUETIAPINE FUMARATE
     Dosage: 0.5 DOSAGE FORM, QD
     Route: 048
     Dates: start: 20191017, end: 20191018
  122. QUETIAPINE FUMARATE [Concomitant]
     Active Substance: QUETIAPINE FUMARATE
     Dosage: 1.5 DOSAGE FORM, QD
     Route: 048
     Dates: start: 20191019, end: 20191019
  123. QUETIAPINE FUMARATE [Concomitant]
     Active Substance: QUETIAPINE FUMARATE
     Dosage: 0.75 DOSAGE FORM, QD
     Route: 048
     Dates: start: 20191020, end: 20191020
  124. QUETIAPINE FUMARATE [Concomitant]
     Active Substance: QUETIAPINE FUMARATE
     Dosage: 87.5 DOSAGE FORM
     Route: 048
     Dates: start: 20191021, end: 20191022
  125. QUETIAPINE FUMARATE [Concomitant]
     Active Substance: QUETIAPINE FUMARATE
     Dosage: 1 DOSAGE FORM, QD
     Route: 048
     Dates: start: 20191023, end: 20191105
  126. DIETARY SUPPLEMENT\PROBIOTICS [Concomitant]
     Active Substance: DIETARY SUPPLEMENT\PROBIOTICS
     Indication: Constipation
     Dosage: 2 GRAM
     Route: 048
     Dates: start: 20190912, end: 20191017
  127. DIETARY SUPPLEMENT\PROBIOTICS [Concomitant]
     Active Substance: DIETARY SUPPLEMENT\PROBIOTICS
     Dosage: 2 GRAM
     Route: 048
     Dates: start: 20191018
  128. SACCHAROMYCES CEREVISIAE [Concomitant]
     Active Substance: SACCHAROMYCES CEREVISIAE
     Indication: Constipation
     Dosage: 282.5 MILLIGRAM
     Route: 048
     Dates: start: 20191001, end: 20191017
  129. SACCHAROMYCES CEREVISIAE [Concomitant]
     Active Substance: SACCHAROMYCES CEREVISIAE
     Dosage: 565 MILLIGRAM
     Route: 048
     Dates: start: 20191018, end: 20191022
  130. MONTMORILLONITE [Concomitant]
     Active Substance: MONTMORILLONITE
     Indication: Product used for unknown indication
     Dosage: 20 MILLILITER
     Route: 048
     Dates: start: 20191019, end: 20191021
  131. POTASSIUM CHLORIDE [Concomitant]
     Active Substance: POTASSIUM CHLORIDE
     Dosage: 30 MILLILITER, QD
     Route: 042
     Dates: start: 20190821, end: 20190821
  132. POTASSIUM CHLORIDE [Concomitant]
     Active Substance: POTASSIUM CHLORIDE
     Dosage: 20 MILLILITER, QD
     Route: 042
     Dates: start: 20190822, end: 20190823
  133. POTASSIUM CHLORIDE [Concomitant]
     Active Substance: POTASSIUM CHLORIDE
     Dosage: 10 MILLILITER, QD
     Route: 042
     Dates: start: 20190926, end: 20190926
  134. POTASSIUM CHLORIDE [Concomitant]
     Active Substance: POTASSIUM CHLORIDE
     Dosage: 20 MILLILITER, QD
     Route: 042
     Dates: start: 20191007, end: 20191011
  135. FUROSEMIDE [Concomitant]
     Active Substance: FUROSEMIDE
     Indication: Prophylaxis
     Dosage: 30 MILLIGRAM, QD
     Route: 048
     Dates: start: 20190822, end: 20190822
  136. FUROSEMIDE [Concomitant]
     Active Substance: FUROSEMIDE
     Dosage: 20 MILLIGRAM, QD
     Route: 048
     Dates: start: 20190827, end: 20190827
  137. FUROSEMIDE [Concomitant]
     Active Substance: FUROSEMIDE
     Dosage: 10 MILLIGRAM, QD
     Route: 048
     Dates: start: 20190830, end: 20190830
  138. FUROSEMIDE [Concomitant]
     Active Substance: FUROSEMIDE
     Dosage: 20 MILLIGRAM, QD
     Route: 048
     Dates: start: 20190901, end: 20190901
  139. FUROSEMIDE [Concomitant]
     Active Substance: FUROSEMIDE
     Dosage: 3 MILLIGRAM, QD
     Route: 048
     Dates: start: 20190907, end: 20190907
  140. FUROSEMIDE [Concomitant]
     Active Substance: FUROSEMIDE
     Dosage: 10 MILLIGRAM, QD
     Route: 048
     Dates: start: 20190918, end: 20190918
  141. FUROSEMIDE [Concomitant]
     Active Substance: FUROSEMIDE
     Dosage: 10 MILLIGRAM, QD
     Route: 048
     Dates: start: 20190920, end: 20190921
  142. FUROSEMIDE [Concomitant]
     Active Substance: FUROSEMIDE
     Dosage: 10 MILLIGRAM, QD
     Route: 048
     Dates: start: 20190925, end: 20190925
  143. FUROSEMIDE [Concomitant]
     Active Substance: FUROSEMIDE
     Dosage: 20 MILLIGRAM, QD
     Route: 048
     Dates: start: 20190929, end: 20190929
  144. FUROSEMIDE [Concomitant]
     Active Substance: FUROSEMIDE
     Dosage: 20 MILLIGRAM, QD
     Route: 048
     Dates: start: 20191003, end: 20191003
  145. FUROSEMIDE [Concomitant]
     Active Substance: FUROSEMIDE
     Dosage: 10 MILLIGRAM, QD
     Route: 048
     Dates: start: 20191012, end: 20191012
  146. FUROSEMIDE [Concomitant]
     Active Substance: FUROSEMIDE
     Dosage: 20 MILLIGRAM, QD
     Route: 048
     Dates: start: 20191110, end: 20191110
  147. REMIFENTANIL HYDROCHLORIDE [Concomitant]
     Active Substance: REMIFENTANIL HYDROCHLORIDE
     Indication: Prophylaxis
     Dosage: 5 MILLIGRAM, QD
     Route: 042
     Dates: start: 20190822, end: 20190830
  148. REMIFENTANIL HYDROCHLORIDE [Concomitant]
     Active Substance: REMIFENTANIL HYDROCHLORIDE
     Dosage: 5 MILLIGRAM, QD
     Route: 042
     Dates: start: 20190901, end: 20190905
  149. REMIFENTANIL HYDROCHLORIDE [Concomitant]
     Active Substance: REMIFENTANIL HYDROCHLORIDE
     Dosage: 10 MILLIGRAM, QD
     Route: 042
     Dates: start: 20190906, end: 20190907
  150. REMIFENTANIL HYDROCHLORIDE [Concomitant]
     Active Substance: REMIFENTANIL HYDROCHLORIDE
     Dosage: 5 MILLIGRAM, QD
     Route: 042
     Dates: start: 20190908, end: 20190908
  151. REMIFENTANIL HYDROCHLORIDE [Concomitant]
     Active Substance: REMIFENTANIL HYDROCHLORIDE
     Dosage: 10 MILLIGRAM, QD
     Route: 042
     Dates: start: 20190820, end: 20190821
  152. TRAMADOL HYDROCHLORIDE [Concomitant]
     Active Substance: TRAMADOL HYDROCHLORIDE
     Indication: Pain
     Dosage: 50 MILLIGRAM, QD
     Route: 048
     Dates: start: 20190904, end: 20190905
  153. TAMSULOSIN HYDROCHLORIDE [Concomitant]
     Active Substance: TAMSULOSIN HYDROCHLORIDE
     Indication: Micturition disorder
     Dosage: 1 DOSAGE FORM, QD
     Route: 048
     Dates: start: 20190429, end: 20190818
  154. TAMSULOSIN HYDROCHLORIDE [Concomitant]
     Active Substance: TAMSULOSIN HYDROCHLORIDE
     Dosage: 1 DOSAGE FORM, QD
     Route: 048
     Dates: start: 20190822
  155. DIAZEPAM [Concomitant]
     Active Substance: DIAZEPAM
     Indication: Depression
     Dosage: 1 DOSAGE FORM, QD
     Route: 048
     Dates: start: 20200303
  156. ESOMEPRAZOLE MAGNESIUM [Concomitant]
     Active Substance: ESOMEPRAZOLE MAGNESIUM
     Indication: Prophylaxis
     Dosage: 1 DOSAGE FORM, QD
     Route: 048
     Dates: start: 20201007
  157. UBIDECARENONE [Concomitant]
     Active Substance: UBIDECARENONE
     Dosage: 5 MILLIGRAM
     Route: 048
     Dates: start: 20190818
  158. METHYLCOBALAMIN [Concomitant]
     Active Substance: METHYLCOBALAMIN
     Indication: Hypovitaminosis
     Dosage: UNK
     Route: 048
     Dates: start: 20190818
  159. METHYLCOBALAMIN [Concomitant]
     Active Substance: METHYLCOBALAMIN
     Dosage: 1 DOSAGE FORM
     Route: 048
     Dates: start: 20190822, end: 20191006
  160. METHYLCOBALAMIN [Concomitant]
     Active Substance: METHYLCOBALAMIN
     Dosage: 1 DOSAGE FORM
     Route: 048
     Dates: start: 20191007, end: 20191008
  161. METHYLCOBALAMIN [Concomitant]
     Active Substance: METHYLCOBALAMIN
     Dosage: 1 DOSAGE FORM
     Route: 048
     Dates: start: 20191009
  162. ERDOSTEINE [Concomitant]
     Active Substance: ERDOSTEINE
     Indication: Cough
     Dosage: 300 MILLIGRAM
     Route: 048
     Dates: start: 20190325, end: 20190818
  163. ERDOSTEINE [Concomitant]
     Active Substance: ERDOSTEINE
     Dosage: 1 DOSAGE FORM
     Route: 048
     Dates: start: 20190822, end: 20190903
  164. THIAMINE HYDROCHLORIDE [Concomitant]
     Active Substance: THIAMINE HYDROCHLORIDE
     Indication: Hypovitaminosis
     Dosage: 50 MILLIGRAM, QD
     Route: 042
     Dates: start: 20181019, end: 20181019
  165. THIAMINE HYDROCHLORIDE [Concomitant]
     Active Substance: THIAMINE HYDROCHLORIDE
     Dosage: 50 MILLIGRAM, QD
     Route: 042
     Dates: start: 20190708, end: 20190722
  166. THIAMINE HYDROCHLORIDE [Concomitant]
     Active Substance: THIAMINE HYDROCHLORIDE
     Dosage: 50 MILLIGRAM, QD
     Route: 042
     Dates: start: 20190805, end: 20190815
  167. THIAMINE HYDROCHLORIDE [Concomitant]
     Active Substance: THIAMINE HYDROCHLORIDE
     Dosage: 50 MILLIGRAM, QD
     Route: 042
     Dates: start: 20190820, end: 20191011
  168. THIAMINE HYDROCHLORIDE [Concomitant]
     Active Substance: THIAMINE HYDROCHLORIDE
     Dosage: 50 MILLIGRAM, QD
     Route: 042
     Dates: start: 20191020, end: 20191120
  169. THIAMINE HYDROCHLORIDE [Concomitant]
     Active Substance: THIAMINE HYDROCHLORIDE
     Dosage: 1 DOSAGE FORM, QD
     Route: 042
     Dates: start: 20191212, end: 20200102
  170. THIAMINE HYDROCHLORIDE [Concomitant]
     Active Substance: THIAMINE HYDROCHLORIDE
     Dosage: 1 DOSAGE FORM, QD
     Route: 042
     Dates: start: 20200122, end: 20200208
  171. THIAMINE HYDROCHLORIDE [Concomitant]
     Active Substance: THIAMINE HYDROCHLORIDE
     Dosage: 1 DOSAGE FORM, QD
     Route: 042
     Dates: start: 20200302, end: 20200506
  172. ACETYLCYSTEINE [Concomitant]
     Active Substance: ACETYLCYSTEINE
     Indication: Cough
     Dosage: 300 MILLIGRAM
     Route: 042
     Dates: start: 20190225, end: 20190325
  173. ACETYLCYSTEINE [Concomitant]
     Active Substance: ACETYLCYSTEINE
     Dosage: 300 MILLIGRAM
     Route: 042
     Dates: start: 20190429, end: 20190429
  174. LIDOCAINE AND PRILOCAINE [Concomitant]
     Active Substance: LIDOCAINE\PRILOCAINE
     Dosage: UNK, QD
     Route: 065
     Dates: start: 20181112, end: 20181113
  175. UBIDECARENONE [Concomitant]
     Active Substance: UBIDECARENONE
     Dosage: 1 DOSAGE FORM
     Route: 048
     Dates: start: 20190822, end: 20201006
  176. CLONAZEPAM [Concomitant]
     Active Substance: CLONAZEPAM
     Indication: Dystonia
     Dosage: 1 DOSAGE FORM
     Route: 048
     Dates: start: 20200427
  177. ACETAMINOPHEN\TRAMADOL HYDROCHLORIDE [Concomitant]
     Active Substance: ACETAMINOPHEN\TRAMADOL HYDROCHLORIDE
     Indication: Pain
     Dosage: 1 DOSAGE FORM, QD
     Route: 048
     Dates: end: 20181018
  178. ACETAMINOPHEN\TRAMADOL HYDROCHLORIDE [Concomitant]
     Active Substance: ACETAMINOPHEN\TRAMADOL HYDROCHLORIDE
     Dosage: 1 DOSAGE FORM, QD
     Route: 048
     Dates: start: 20181112, end: 20181113
  179. RANITIDINE HYDROCHLORIDE [Concomitant]
     Active Substance: RANITIDINE HYDROCHLORIDE
     Dosage: 300 MILLIGRAM, QD
     Route: 048
     Dates: end: 20190324
  180. ACETYLCYSTEINE [Concomitant]
     Active Substance: ACETYLCYSTEINE
     Indication: Cough
     Dosage: 300 MILLIGRAM
     Route: 048
     Dates: start: 20190821
  181. ACETYLCYSTEINE [Concomitant]
     Active Substance: ACETYLCYSTEINE
     Dosage: 300 MILLIGRAM
     Route: 048
     Dates: start: 20190822, end: 20190827
  182. ACETYLCYSTEINE [Concomitant]
     Active Substance: ACETYLCYSTEINE
     Dosage: 300 MILLIGRAM
     Route: 048
     Dates: start: 20190828, end: 20190831
  183. ACETYLCYSTEINE [Concomitant]
     Active Substance: ACETYLCYSTEINE
     Dosage: 600 MILLIGRAM
     Route: 048
     Dates: start: 20190901, end: 20190902
  184. ACETYLCYSTEINE [Concomitant]
     Active Substance: ACETYLCYSTEINE
     Dosage: 600 MILLIGRAM
     Route: 048
     Dates: start: 20190903, end: 20191120
  185. AMLODIPINE BESYLATE [Concomitant]
     Active Substance: AMLODIPINE BESYLATE
     Dosage: 0.5 DOSAGE FORM, QD
     Route: 048
     Dates: start: 20190708, end: 20190818
  186. BACLOFEN [Concomitant]
     Active Substance: BACLOFEN
     Indication: Muscle disorder
     Dosage: 10 MILLIGRAM, QD
     Route: 048
     Dates: start: 20200426
  187. GLYCOPYRROLATE [Concomitant]
     Active Substance: GLYCOPYRROLATE
     Indication: Saliva altered
     Dosage: 1 DOSAGE FORM
     Route: 048
     Dates: start: 20191106, end: 20201006
  188. FAMOTIDINE [Concomitant]
     Active Substance: FAMOTIDINE
     Dosage: 30 MILLIGRAM
     Route: 048
     Dates: start: 20190717, end: 20190717

REACTIONS (2)
  - Septic shock [Recovered/Resolved]
  - Drug interaction [Unknown]
